FAERS Safety Report 4458106-7 (Version None)
Quarter: 2004Q3

REPORT INFORMATION
  Report Type: 
  Country: None (occurrence: None)
  Receive Date: 20040924
  Receipt Date: 20040914
  Transmission Date: 20050211
  Serious: Yes (Other)
  Sender: FDA-Public Use
  Company Number: JP-MERCK-0409USA01630

PATIENT

DRUGS (4)
  1. AMLODIN [Concomitant]
     Route: 048
  2. PEPCID [Suspect]
     Route: 048
  3. GASMOTIN [Suspect]
     Route: 048
  4. URSO [Concomitant]
     Route: 048

REACTIONS (2)
  - ASPARTATE AMINOTRANSFERASE INCREASED [None]
  - LIVER DISORDER [None]
